FAERS Safety Report 5115832-4 (Version None)
Quarter: 2006Q3

REPORT INFORMATION
  Report Type: 
  Country: None (occurrence: None)
  Receive Date: 20060927
  Receipt Date: 20060922
  Transmission Date: 20061208
  Serious: Yes (Hospitalization)
  Sender: FDA-Public Use
  Company Number: US-MERCK-0609USA05778

PATIENT
  Age: 77 Year
  Sex: Male

DRUGS (2)
  1. PROSCAR [Suspect]
     Route: 048
  2. STUDY DRUG (UNSPECIFIED) [Concomitant]
     Route: 065

REACTIONS (2)
  - LOSS OF CONSCIOUSNESS [None]
  - SYNCOPE [None]
